FAERS Safety Report 22358493 (Version 1)
Quarter: 2023Q2

REPORT INFORMATION
  Report Type: Spontaneous
  Country: US (occurrence: US)
  Receive Date: 20230524
  Receipt Date: 20230524
  Transmission Date: 20230722
  Serious: Yes (Other)
  Sender: FDA-Public Use
  Company Number: US-GRANULES-US-2023GRALIT00120

PATIENT
  Age: 61 Year
  Sex: Female

DRUGS (1)
  1. SERTRALINE HYDROCHLORIDE [Suspect]
     Active Substance: SERTRALINE HYDROCHLORIDE
     Indication: Product used for unknown indication
     Route: 065

REACTIONS (10)
  - Rhabdomyolysis [Recovered/Resolved]
  - Syncope [Recovering/Resolving]
  - Metabolic disorder [Recovering/Resolving]
  - Exercise tolerance decreased [Recovering/Resolving]
  - Muscle spasticity [Recovering/Resolving]
  - Dysphagia [Recovering/Resolving]
  - Metabolic acidosis [Recovering/Resolving]
  - Muscular weakness [Recovering/Resolving]
  - Trismus [Recovering/Resolving]
  - Fatigue [Recovering/Resolving]
